FAERS Safety Report 9387197 (Version 1)
Quarter: 2013Q3

REPORT INFORMATION
  Report Type: Spontaneous
  Country: US (occurrence: None)
  Receive Date: 20130703
  Receipt Date: 20130703
  Transmission Date: 20140515
  Serious: Yes (Other)
  Sender: FDA-Public Use
  Company Number: None

PATIENT
  Age: 69 Year
  Sex: Male
  Weight: 48.31 kg

DRUGS (17)
  1. TRAMADOL HCL 50 MG TAB [Suspect]
     Indication: PROCEDURAL PAIN
     Route: 048
     Dates: start: 20130615, end: 20130616
  2. NATURE-THROID [Concomitant]
  3. TESTOSTERONE CYPIONATE [Concomitant]
  4. CALCIUM CITRATE [Concomitant]
  5. FLAX SEED OIL [Concomitant]
  6. MELATONIN [Concomitant]
  7. HGH EXTREME [Concomitant]
  8. GARLIC [Concomitant]
  9. FORWARD [Concomitant]
  10. COQ10 [Concomitant]
  11. VIT D [Concomitant]
  12. VIT A [Concomitant]
  13. CALCIUM [Concomitant]
  14. BILBERRY [Concomitant]
  15. HCI [Concomitant]
  16. DHEA [Concomitant]
  17. MICROHYDRIN [Concomitant]

REACTIONS (1)
  - Throat tightness [None]
